FAERS Safety Report 13900172 (Version 2)
Quarter: 2017Q3

REPORT INFORMATION
  Report Type: Report from Study
  Country: CA (occurrence: CA)
  Receive Date: 20170824
  Receipt Date: 20170914
  Transmission Date: 20171127
  Serious: Yes (Hospitalization, Other)
  Sender: FDA-Public Use
  Company Number: PHHY2017CA114104

PATIENT
  Age: 64 Year
  Sex: Male

DRUGS (3)
  1. ENTRESTO [Suspect]
     Active Substance: SACUBITRIL\VALSARTAN
     Dosage: 2 DF (49 MG SACUBITRIL, 51 MG VALSARTAN), UNK
     Route: 048
     Dates: start: 20170203, end: 20170220
  2. ENTRESTO [Suspect]
     Active Substance: SACUBITRIL\VALSARTAN
     Indication: CARDIAC FAILURE
     Dosage: 2 DF (24 MG SACUBITRIL, 26 MG VALSARTAN), UNK
     Route: 048
     Dates: start: 20170122, end: 20170202
  3. ENTRESTO [Suspect]
     Active Substance: SACUBITRIL\VALSARTAN
     Dosage: 2 DF (97 MG SACUBITRIL, 103 MG VALSARTAN), UNK
     Route: 048
     Dates: start: 20170221

REACTIONS (7)
  - Aggression [Unknown]
  - Syncope [Recovered/Resolved]
  - Acute kidney injury [Recovered/Resolved]
  - Hypotension [Recovered/Resolved]
  - Hypothermia [Recovered/Resolved]
  - Hypoglycaemia [Recovered/Resolved]
  - Confusional state [Unknown]

NARRATIVE: CASE EVENT DATE: 20170707
